FAERS Safety Report 9465775 (Version 2)
Quarter: 2013Q3

REPORT INFORMATION
  Report Type: Spontaneous
  Country: US (occurrence: US)
  Receive Date: 20130820
  Receipt Date: 20130820
  Transmission Date: 20140515
  Serious: Yes (Hospitalization)
  Sender: FDA-Public Use
  Company Number: US-UCBSA-071130

PATIENT
  Sex: Male

DRUGS (3)
  1. KEPPRA XR [Suspect]
     Indication: CONVULSION
     Dosage: STRENGTH:500 MG
  2. KEPPRA XR [Suspect]
     Indication: CONVULSION
     Dosage: DOSE STRENGTH: 500 MG 6/DAILY
  3. KEPPRA XR [Suspect]
     Indication: CONVULSION

REACTIONS (4)
  - Fall [Unknown]
  - Inappropriate schedule of drug administration [Unknown]
  - Convulsion [Recovered/Resolved]
  - Confusional state [Not Recovered/Not Resolved]
